FAERS Safety Report 16086666 (Version 3)
Quarter: 2019Q2

REPORT INFORMATION
  Report Type: Report from Study
  Country: EC (occurrence: EC)
  Receive Date: 20190318
  Receipt Date: 20190416
  Transmission Date: 20190711
  Serious: Yes (Death, Hospitalization, Other)
  Sender: FDA-Public Use
  Company Number: EC-SEATTLE GENETICS-2019SGN00763

PATIENT
  Age: 28 Year
  Sex: Female
  Weight: 70.5 kg

DRUGS (1)
  1. BRENTUXIMAB VEDOTIN-MPI [Suspect]
     Active Substance: BRENTUXIMAB VEDOTIN
     Indication: HODGKIN^S DISEASE
     Dosage: 130 MG, UNK
     Route: 042
     Dates: start: 20180201, end: 20190312

REACTIONS (2)
  - Pleural effusion [Unknown]
  - Renal failure [Fatal]

NARRATIVE: CASE EVENT DATE: 20190320
